FAERS Safety Report 8515218-6 (Version None)
Quarter: 2012Q3

REPORT INFORMATION
  Report Type: 
  Country: None (occurrence: None)
  Receive Date: 20120705
  Receipt Date: 20120625
  Transmission Date: 20120928
  Serious: Yes (Other)
  Sender: FDA-Public Use
  Company Number: AUR-APL-2012-02789

PATIENT
  Age: 29 Year
  Sex: Female

DRUGS (2)
  1. PHENYTOIN [Suspect]
     Indication: GRAND MAL CONVULSION
  2. DIVALPROEX SODIUM [Suspect]
     Indication: GRAND MAL CONVULSION

REACTIONS (1)
  - GINGIVAL HYPERTROPHY [None]
